FAERS Safety Report 4766160-8 (Version None)
Quarter: 2005Q3

REPORT INFORMATION
  Report Type: 
  Country: None (occurrence: None)
  Receive Date: 20050909
  Receipt Date: 20050824
  Transmission Date: 20060218
  Serious: Yes (Life-Threatening, Hospitalization)
  Sender: FDA-Public Use
  Company Number: DSA_26932_2005

PATIENT
  Age: 61 Year
  Sex: Female

DRUGS (6)
  1. LORAZEPAM [Suspect]
     Dosage: DF ONCE PO
     Route: 048
     Dates: start: 20050806, end: 20050806
  2. BROMAZEPAM [Suspect]
     Dosage: DF ONCE
     Dates: start: 20050806, end: 20050806
  3. FLURAZEPAM [Suspect]
     Dosage: DF ONCE
     Dates: start: 20050806, end: 20050806
  4. TEMAZEPAM [Suspect]
     Dosage: PO
     Route: 048
     Dates: end: 20050809
  5. BROMEZEPAM [Suspect]
     Dosage: DF
     Dates: end: 20050807
  6. FLURAZEPAM [Suspect]
     Dosage: DF
     Dates: end: 20050807

REACTIONS (12)
  - AGGRESSION [None]
  - AKATHISIA [None]
  - INTENTIONAL MISUSE [None]
  - LARYNGEAL OBSTRUCTION [None]
  - LARYNGOSPASM [None]
  - LOSS OF CONSCIOUSNESS [None]
  - MULTIPLE DRUG OVERDOSE [None]
  - PNEUMONIA ASPIRATION [None]
  - RESPIRATORY DISTRESS [None]
  - SEDATION [None]
  - SUICIDE ATTEMPT [None]
  - UNRESPONSIVE TO PAIN STIMULI [None]
